FAERS Safety Report 7888048-6 (Version None)
Quarter: 2011Q4

REPORT INFORMATION
  Report Type: 
  Country: None (occurrence: None)
  Receive Date: 20111103
  Receipt Date: 20111019
  Transmission Date: 20120403
  Serious: Yes (Hospitalization, Other)
  Sender: FDA-Public Use
  Company Number: GR-SANOFI-AVENTIS-2011SA069190

PATIENT
  Age: 70 Year
  Sex: Male

DRUGS (2)
  1. LANTUS [Suspect]
     Dosage: DOSE:32 UNIT(S)
     Route: 051
  2. CLIKSTAR [Suspect]

REACTIONS (1)
  - DIABETIC HYPERGLYCAEMIC COMA [None]
